FAERS Safety Report 10651896 (Version 3)
Quarter: 2015Q1

REPORT INFORMATION
  Report Type: Report from Study
  Country: AU (occurrence: AU)
  Receive Date: 20141215
  Receipt Date: 20150114
  Transmission Date: 20150720
  Serious: Yes (Other)
  Sender: FDA-Public Use
  Company Number: PHHY2014AU161531

PATIENT
  Age: 56 Year
  Sex: Male

DRUGS (13)
  1. TACROLIMUS. [Suspect]
     Active Substance: TACROLIMUS
     Dosage: UNK, DOSE INCREASED (8 TO 9 NG/ML BY HPLC)
     Route: 065
  2. TACROLIMUS. [Suspect]
     Active Substance: TACROLIMUS
     Dosage: 10 MG, 1 TO 10 MG, TORUGH LEVEL 6 TO 7 NG PER ML
     Route: 065
  3. MYCOPHENOLATE MOFETIL. [Suspect]
     Active Substance: MYCOPHENOLATE MOFETIL
     Dosage: 500 MG, QID
     Route: 065
  4. MYCOPHENOLATE MOFETIL. [Suspect]
     Active Substance: MYCOPHENOLATE MOFETIL
     Dosage: 1 G, BID
     Route: 065
  5. TACROLIMUS. [Suspect]
     Active Substance: TACROLIMUS
     Dosage: 1.5 MG, BID
     Route: 065
  6. METHYLPREDNISOLONE. [Suspect]
     Active Substance: METHYLPREDNISOLONE
     Indication: PRODUCT USED FOR UNKNOWN INDICATION
     Dosage: 500 MG, UNK
     Route: 042
  7. PREDNISOLONE. [Suspect]
     Active Substance: PREDNISOLONE
     Dosage: 20 MG, QD
     Route: 065
  8. TACROLIMUS. [Suspect]
     Active Substance: TACROLIMUS
     Indication: IMMUNOSUPPRESSION
     Dosage: UNK
     Route: 065
  9. BASILIXIMAB [Suspect]
     Active Substance: BASILIXIMAB
     Indication: IMMUNOSUPPRESSION
     Route: 065
  10. PREDNISOLONE. [Suspect]
     Active Substance: PREDNISOLONE
     Indication: IMMUNOSUPPRESSION
     Dosage: 5 MG, QD
     Route: 065
  11. MYCOPHENOLATE MOFETIL. [Suspect]
     Active Substance: MYCOPHENOLATE MOFETIL
     Indication: IMMUNOSUPPRESSION
     Dosage: 500 MG, BID
     Route: 065
  12. PREDNISOLONE. [Suspect]
     Active Substance: PREDNISOLONE
     Dosage: 50 MG, QD
     Route: 065
  13. CEFTRIAXONE. [Suspect]
     Active Substance: CEFTRIAXONE
     Indication: PRODUCT USED FOR UNKNOWN INDICATION
     Dosage: UNK
     Route: 065

REACTIONS (47)
  - Acute myocardial infarction [Unknown]
  - Renal arteriosclerosis [Unknown]
  - Disseminated tuberculosis [Recovered/Resolved]
  - Muscle necrosis [Recovered/Resolved]
  - Urosepsis [Unknown]
  - Urinary retention [Unknown]
  - Joint tuberculosis [Unknown]
  - Arthralgia [Unknown]
  - Myalgia [Unknown]
  - Skin mass [Unknown]
  - Dizziness [Unknown]
  - Urethral stenosis [Unknown]
  - Neutropenia [Unknown]
  - Pyrexia [Unknown]
  - Otitis externa bacterial [Unknown]
  - Bacterial infection [Unknown]
  - Kidney transplant rejection [Unknown]
  - Fibrosis [Unknown]
  - Atrioventricular block second degree [Unknown]
  - Lymphoproliferative disorder [Unknown]
  - Joint effusion [Unknown]
  - Blood creatinine increased [Unknown]
  - Intestinal mass [Unknown]
  - Cough [Recovered/Resolved]
  - Gastroenteritis [Unknown]
  - Soft tissue inflammation [Unknown]
  - Myositis [Unknown]
  - Granuloma [Recovered/Resolved]
  - Peripheral swelling [Unknown]
  - Excessive granulation tissue [Recovered/Resolved]
  - Ophthalmic herpes simplex [Unknown]
  - Otitis externa candida [Unknown]
  - Myocardial ischaemia [Unknown]
  - Chest discomfort [Unknown]
  - Staphylococcal infection [Unknown]
  - Oesophageal mass [Recovered/Resolved]
  - Lung infection [Recovered/Resolved]
  - Respiratory tract inflammation [Recovered/Resolved]
  - Herpes simplex [Unknown]
  - Ulcerative keratitis [Unknown]
  - Cytomegalovirus viraemia [Unknown]
  - Renal tubular atrophy [Unknown]
  - Chronic allograft nephropathy [Unknown]
  - Pyomyositis [Unknown]
  - Candida infection [Unknown]
  - Epstein-Barr virus infection [Unknown]
  - Urinary tract infection [Unknown]

NARRATIVE: CASE EVENT DATE: 2005
